FAERS Safety Report 9768307 (Version 2)
Quarter: 2013Q4

REPORT INFORMATION
  Report Type: Spontaneous
  Country: JP (occurrence: JP)
  Receive Date: 20131217
  Receipt Date: 20131217
  Transmission Date: 20140711
  Serious: Yes (Life-Threatening, Hospitalization)
  Sender: FDA-Public Use
  Company Number: JP-CELGENEUS-087-21660-13121059

PATIENT
  Age: 75 Year
  Sex: Male
  Weight: 47 kg

DRUGS (4)
  1. ABRAXANE [Suspect]
     Indication: SQUAMOUS CELL CARCINOMA OF LUNG
     Dosage: 140 MILLIGRAM
     Route: 041
     Dates: start: 20130705, end: 20131011
  2. PARAPLATIN [Suspect]
     Indication: SQUAMOUS CELL CARCINOMA OF LUNG
     Dosage: 470 MILLIGRAM
     Route: 041
     Dates: start: 20130705, end: 20130927
  3. KYTRIL [Concomitant]
     Indication: PRODUCT USED FOR UNKNOWN INDICATION
     Dosage: 2 MILLIGRAM
     Route: 048
     Dates: start: 20130705, end: 20130927
  4. DECADRON [Concomitant]
     Indication: PRODUCT USED FOR UNKNOWN INDICATION
     Dosage: 8 MILLIGRAM
     Route: 048
     Dates: start: 20130705, end: 20130929

REACTIONS (2)
  - Ileal perforation [Recovered/Resolved]
  - Peritonitis [Recovered/Resolved]
